FAERS Safety Report 5357090-1 (Version None)
Quarter: 2007Q2

REPORT INFORMATION
  Report Type: 
  Country: None (occurrence: None)
  Receive Date: 20070614
  Receipt Date: 20070606
  Transmission Date: 20071010
  Serious: Yes (Hospitalization, Other)
  Sender: FDA-Public Use
  Company Number: JP-ALLERGAN-0705732US

PATIENT
  Sex: Female

DRUGS (2)
  1. ALESION TABLET [Suspect]
     Indication: PRURITUS
     Dosage: 20 MG, UNK
     Route: 048
     Dates: start: 20060303, end: 20060315
  2. RIZABEN [Suspect]
     Indication: HYPERTROPHIC SCAR
     Dosage: 300 MG, UNK
     Route: 048
     Dates: start: 20060210, end: 20060315

REACTIONS (1)
  - LIVER DISORDER [None]
